FAERS Safety Report 7956303-7 (Version None)
Quarter: 2011Q4

REPORT INFORMATION
  Report Type: 
  Country: None (occurrence: None)
  Receive Date: 20111125
  Receipt Date: 20111118
  Transmission Date: 20120403
  Serious: Yes (Other)
  Sender: FDA-Public Use
  Company Number: 2011028632

PATIENT
  Age: 52 Year
  Sex: Female
  Weight: 80.2867 kg

DRUGS (10)
  1. HIZENTRA [Suspect]
  2. XOLAIR [Concomitant]
  3. XOPENEX [Concomitant]
  4. VITAMIN D [Concomitant]
  5. SYMBICORT [Concomitant]
  6. HIZENTRA [Suspect]
     Indication: IMMUNODEFICIENCY COMMON VARIABLE
     Dosage: SEE IMAGE
     Route: 058
     Dates: start: 20101022
  7. HIZENTRA [Suspect]
     Indication: IMMUNODEFICIENCY COMMON VARIABLE
     Dosage: SEE IMAGE
     Route: 058
     Dates: start: 20101218
  8. HIZENTRA [Suspect]
  9. ZYFLO [Concomitant]
  10. SIMVASTATIN [Concomitant]

REACTIONS (6)
  - INFUSION SITE PAIN [None]
  - CELLULITIS [None]
  - PRODUCTIVE COUGH [None]
  - HEADACHE [None]
  - CHRONIC SINUSITIS [None]
  - INFUSION SITE SWELLING [None]
